FAERS Safety Report 9025133 (Version 1)
Quarter: 2013Q1

REPORT INFORMATION
  Report Type: Spontaneous
  Country: CN (occurrence: CN)
  Receive Date: 20130122
  Receipt Date: 20130122
  Transmission Date: 20140127
  Serious: Yes (Death)
  Sender: FDA-Public Use
  Company Number: CN-PFIZER INC-2013022329

PATIENT
  Sex: 0

DRUGS (6)
  1. VORICONAZOLE [Suspect]
     Indication: FUNGAL INFECTION
     Dosage: 6 MG/KG, 2X/DAY
     Route: 042
  2. VORICONAZOLE [Interacting]
     Dosage: 4 MG/KG, 2X/DAY
     Route: 042
  3. VORICONAZOLE [Interacting]
     Indication: FUNGAL INFECTION
     Dosage: 200 MG, 2X/DAY
     Route: 048
  4. CYCLOSPORINE A [Interacting]
     Indication: PROPHYLAXIS
     Dosage: 3 MG/KG, 1X/DAY
     Route: 042
  5. ITRACONAZOLE [Interacting]
     Indication: INFECTION PROPHYLAXIS
     Dosage: 200 MG, 1X/DAY
     Route: 042
  6. METHOTREXATE [Concomitant]
     Indication: PROPHYLAXIS

REACTIONS (2)
  - Drug interaction [Fatal]
  - Nervous system disorder [Fatal]
